FAERS Safety Report 12618736 (Version 3)
Quarter: 2016Q3

REPORT INFORMATION
  Report Type: Spontaneous
  Country: US (occurrence: US)
  Receive Date: 20160803
  Receipt Date: 20160923
  Transmission Date: 20161109
  Serious: Yes (Other)
  Sender: FDA-Public Use
  Company Number: US-INDIVIOR LIMITED-INDV-092533-2016

PATIENT
  Age: 56 Year
  Sex: Female

DRUGS (4)
  1. SUBOXONE [Suspect]
     Active Substance: BUPRENORPHINE HYDROCHLORIDE\NALOXONE HYDROCHLORIDE
     Indication: DRUG DEPENDENCE
     Dosage: 5 MG, DAILY
     Route: 060
     Dates: start: 2014, end: 201605
  2. SUBOXONE [Suspect]
     Active Substance: BUPRENORPHINE HYDROCHLORIDE\NALOXONE HYDROCHLORIDE
     Indication: PAIN
     Dosage: 6MG, DAILY
     Route: 060
     Dates: start: 201605, end: 20160722
  3. PROLIA [Suspect]
     Active Substance: DENOSUMAB
     Indication: OSTEOPOROSIS
     Dosage: UNK, EVERY 6 MONTHS
     Route: 030
  4. SUBOXONE [Suspect]
     Active Substance: BUPRENORPHINE HYDROCHLORIDE\NALOXONE HYDROCHLORIDE
     Dosage: 6 MG, DAILY
     Route: 060
     Dates: start: 201605, end: 20160722

REACTIONS (9)
  - Product preparation error [Recovered/Resolved]
  - Rectal lesion [Recovered/Resolved]
  - Intentional product use issue [Recovered/Resolved]
  - Stomatitis [Recovered/Resolved]
  - Anal squamous cell carcinoma [Recovered/Resolved]
  - Oral pain [Recovered/Resolved]
  - Agitation [Recovered/Resolved]
  - Therapeutic product ineffective [Recovered/Resolved]
  - Diarrhoea [Recovered/Resolved]

NARRATIVE: CASE EVENT DATE: 2014
